FAERS Safety Report 8910822 (Version 2)
Quarter: 2014Q1

REPORT INFORMATION
  Report Type: Spontaneous
  Country: US (occurrence: US)
  Receive Date: 20121115
  Receipt Date: 20140102
  Transmission Date: 20141002
  Serious: Yes (Disabling)
  Sender: FDA-Public Use
  Company Number: US-009507513-1211USA004416

PATIENT
  Sex: Male

DRUGS (4)
  1. FINASTERIDE [Suspect]
     Indication: BENIGN PROSTATIC HYPERPLASIA
     Dosage: UNK
     Route: 048
     Dates: start: 201105, end: 2012
  2. FINASTERIDE [Suspect]
     Indication: PROSTATOMEGALY
  3. TAMSULOSIN HYDROCHLORIDE [Suspect]
     Indication: BENIGN PROSTATIC HYPERPLASIA
     Dosage: UNK
     Dates: start: 201105
  4. TAMSULOSIN HYDROCHLORIDE [Suspect]
     Indication: PROSTATOMEGALY

REACTIONS (4)
  - Emotional distress [Unknown]
  - Sexual dysfunction [Not Recovered/Not Resolved]
  - Anxiety [Unknown]
  - Erectile dysfunction [Not Recovered/Not Resolved]
